FAERS Safety Report 5343923-1 (Version None)
Quarter: 2007Q2

REPORT INFORMATION
  Report Type: 
  Country: None (occurrence: None)
  Receive Date: 20070604
  Receipt Date: 20070601
  Transmission Date: 20071010
  Serious: Yes (Death, Hospitalization)
  Sender: FDA-Public Use
  Company Number: GB-BRISTOL-MYERS SQUIBB COMPANY-13800941

PATIENT
  Sex: Male

DRUGS (9)
  1. CARBOPLATIN [Suspect]
     Indication: NEOPLASM MALIGNANT
     Route: 042
     Dates: start: 20041215, end: 20041215
  2. METHOTREXATE [Suspect]
     Indication: NEOPLASM MALIGNANT
     Route: 042
     Dates: start: 20041215, end: 20041230
  3. VINBLASTINE SULFATE [Suspect]
     Indication: NEOPLASM MALIGNANT
     Route: 042
     Dates: start: 20041215, end: 20041230
  4. BENDROFLUAZIDE [Concomitant]
  5. CODEINE PHOSPHATE [Concomitant]
  6. MOVICOL [Concomitant]
  7. NIFEDIPINE [Concomitant]
  8. PARACETAMOL [Concomitant]
  9. RAMIPRIL [Concomitant]

REACTIONS (4)
  - CATHETER RELATED COMPLICATION [None]
  - MUSCULOSKELETAL DISCOMFORT [None]
  - NEUTROPENIC SEPSIS [None]
  - PENILE PAIN [None]
